FAERS Safety Report 15999886 (Version 1)
Quarter: 2019Q1

REPORT INFORMATION
  Report Type: Spontaneous
  Country: ES (occurrence: ES)
  Receive Date: 20190225
  Receipt Date: 20190225
  Transmission Date: 20190418
  Serious: Yes (Other)
  Sender: FDA-Public Use
  Company Number: ES-PFIZER INC-2015322375

PATIENT
  Age: 49 Year
  Sex: Male

DRUGS (4)
  1. TOBRAMYCIN. [Concomitant]
     Active Substance: TOBRAMYCIN
     Indication: PSEUDOMONAS INFECTION
     Dosage: 350 MG, DAILY
     Route: 042
  2. CEFTAZIDIME. [Suspect]
     Active Substance: CEFTAZIDIME
     Dosage: 2 G, EVERY 8 HOURS
     Route: 042
  3. CEFTAZIDIME. [Suspect]
     Active Substance: CEFTAZIDIME
     Dosage: 2 G, EVERY 8 HOURS
     Route: 042
  4. CEFTAZIDIME. [Suspect]
     Active Substance: CEFTAZIDIME
     Indication: PSEUDOMONAS INFECTION
     Dosage: 2 G, EVERY 8 HOURS
     Route: 042

REACTIONS (1)
  - Mania [Recovered/Resolved]
